FAERS Safety Report 13788266 (Version 1)
Quarter: 2017Q3

REPORT INFORMATION
  Report Type: Spontaneous
  Country: US (occurrence: US)
  Receive Date: 20170725
  Receipt Date: 20170725
  Transmission Date: 20171127
  Serious: No
  Sender: FDA-Public Use
  Company Number: US-JNJFOC-20170605681

PATIENT
  Age: 68 Year
  Sex: Female

DRUGS (1)
  1. IMBRUVICA [Suspect]
     Active Substance: IBRUTINIB
     Indication: CHRONIC LYMPHOCYTIC LEUKAEMIA
     Route: 048
     Dates: start: 20170502, end: 20170529

REACTIONS (4)
  - Bone pain [Unknown]
  - Hypersensitivity [Unknown]
  - Stomatitis [Unknown]
  - Rash generalised [Unknown]

NARRATIVE: CASE EVENT DATE: 201705
